FAERS Safety Report 9258290 (Version 1)
Quarter: 2013Q2

REPORT INFORMATION
  Report Type: Spontaneous
  Country: GR (occurrence: GR)
  Receive Date: 20130426
  Receipt Date: 20130426
  Transmission Date: 20140414
  Serious: Yes (Hospitalization, Other)
  Sender: FDA-Public Use
  Company Number: GR-PFIZER INC-2013126565

PATIENT
  Age: 16 Month
  Sex: Male

DRUGS (12)
  1. PIPERACILLIN/TAZOBACTAM [Suspect]
     Indication: CLOSTRIDIAL INFECTION
     Dosage: UNK
  2. PIPERACILLIN/TAZOBACTAM [Suspect]
     Indication: STAPHYLOCOCCAL INFECTION
  3. PIPERACILLIN/TAZOBACTAM [Suspect]
     Indication: ENTEROCOCCAL INFECTION
  4. LINEZOLID [Suspect]
     Indication: ENTEROCOCCAL INFECTION
     Dosage: UNK
  5. LINEZOLID [Suspect]
     Indication: STAPHYLOCOCCAL INFECTION
  6. LINEZOLID [Suspect]
     Indication: CLOSTRIDIAL INFECTION
  7. CLINDAMYCIN PHOSPHATE [Suspect]
     Indication: INFECTION
     Dosage: UNK
  8. METRONIDAZOLE [Suspect]
     Indication: INFECTION
     Dosage: UNK
  9. CEFOTAXIME [Suspect]
     Indication: INFECTION
     Dosage: UNK
  10. BENZYLPENICILLIN POTASSIUM [Suspect]
     Indication: STAPHYLOCOCCAL INFECTION
     Dosage: UNK
  11. BENZYLPENICILLIN POTASSIUM [Suspect]
     Indication: ENTEROCOCCAL INFECTION
  12. BENZYLPENICILLIN POTASSIUM [Suspect]
     Indication: CLOSTRIDIAL INFECTION

REACTIONS (11)
  - Drug ineffective [Unknown]
  - Septic shock [Recovered/Resolved]
  - Disseminated intravascular coagulation [Recovered/Resolved]
  - Pleural effusion [Recovered/Resolved]
  - Cellulitis [Recovered/Resolved]
  - Myositis [Recovered/Resolved]
  - Wound haemorrhage [None]
  - Clostridium test positive [None]
  - Staphylococcus test positive [None]
  - Enterococcus test positive [None]
  - Drug ineffective [None]
